FAERS Safety Report 20672802 (Version 1)
Quarter: 2022Q2

REPORT INFORMATION
  Report Type: Report from Study
  Country: CA (occurrence: CA)
  Receive Date: 20220405
  Receipt Date: 20220405
  Transmission Date: 20220721
  Serious: Yes (Other)
  Sender: FDA-Public Use
  Company Number: None

PATIENT
  Age: 42 Year
  Sex: Male

DRUGS (3)
  1. METHOTREXATE [Suspect]
     Active Substance: METHOTREXATE
     Indication: Product used for unknown indication
     Route: 065
  2. COSENTYX [Suspect]
     Active Substance: SECUKINUMAB
     Indication: Psoriasis
     Dosage: 1 EVERY 1 MONTHS
     Route: 058
  3. CYCLOSPORINE [Concomitant]
     Active Substance: CYCLOSPORINE
     Route: 065

REACTIONS (4)
  - Hepatotoxicity [Unknown]
  - Psoriasis [Unknown]
  - Drug ineffective [Unknown]
  - Drug intolerance [Unknown]
